FAERS Safety Report 8619190-X (Version None)
Quarter: 2012Q3

REPORT INFORMATION
  Report Type: 
  Country: None (occurrence: None)
  Receive Date: 20120824
  Receipt Date: 20120815
  Transmission Date: 20120928
  Serious: Yes (Death, Other)
  Sender: FDA-Public Use
  Company Number: FR-CELGENEUS-056-20785-08040381

PATIENT

DRUGS (3)
  1. PREDNISONE TAB [Suspect]
     Indication: MULTIPLE MYELOMA
     Dosage: D1-4
     Route: 065
  2. THALIDOMIDE [Suspect]
     Indication: MULTIPLE MYELOMA
     Dosage: 100 MILLIGRAM
     Route: 048
  3. MELPHALAN HYDROCHLORIDE [Suspect]
     Indication: MULTIPLE MYELOMA
     Dosage: /KG
     Route: 065

REACTIONS (19)
  - DEPRESSION [None]
  - NAUSEA [None]
  - RASH [None]
  - CONSTIPATION [None]
  - OEDEMA [None]
  - THROMBOSIS [None]
  - DEATH [None]
  - NEUROPATHY PERIPHERAL [None]
  - DEEP VEIN THROMBOSIS [None]
  - TOXICITY TO VARIOUS AGENTS [None]
  - NERVOUS SYSTEM DISORDER [None]
  - GASTROINTESTINAL DISORDER [None]
  - NEUTROPENIA [None]
  - HAEMATOTOXICITY [None]
  - VOMITING [None]
  - INTESTINAL PERFORATION [None]
  - DISEASE PROGRESSION [None]
  - SOMNOLENCE [None]
  - CARDIAC DISORDER [None]
